FAERS Safety Report 7971379-9 (Version None)
Quarter: 2011Q4

REPORT INFORMATION
  Report Type: 
  Country: None (occurrence: None)
  Receive Date: 20111212
  Receipt Date: 20111201
  Transmission Date: 20120403
  Serious: Yes (Hospitalization)
  Sender: FDA-Public Use
  Company Number: FR-MERCK-1111FRA00048

PATIENT
  Age: 70 Year
  Sex: Male
  Weight: 76 kg

DRUGS (7)
  1. ASPIRIN AND PRAVASTATIN SODIUM [Concomitant]
     Route: 065
     Dates: start: 20040101
  2. SAW PALMETTO [Concomitant]
     Route: 065
     Dates: start: 20040101
  3. IRBESARTAN [Concomitant]
     Route: 065
     Dates: start: 20040101
  4. JANUVIA [Suspect]
     Indication: PANCREATOGENOUS DIABETES
     Route: 048
     Dates: start: 20110919, end: 20111007
  5. JANUMET [Suspect]
     Indication: PANCREATOGENOUS DIABETES
     Route: 048
     Dates: start: 20110623, end: 20110919
  6. PANCREATIN [Concomitant]
     Route: 048
     Dates: start: 20040101
  7. REPAGLINIDE [Concomitant]
     Route: 065
     Dates: start: 20040101

REACTIONS (17)
  - PANCREATIC CYST [None]
  - BILIARY DILATATION [None]
  - LACTIC ACIDOSIS [None]
  - ABDOMINAL SEPSIS [None]
  - HEPATIC FAILURE [None]
  - TUMOUR COMPRESSION [None]
  - BILE DUCT STENOSIS [None]
  - TACHYCARDIA [None]
  - CHOLESTASIS [None]
  - CYTOLYTIC HEPATITIS [None]
  - RENAL FAILURE [None]
  - HAEMODYNAMIC INSTABILITY [None]
  - HYPOTENSION [None]
  - HYPERGLYCAEMIA [None]
  - HEPATITIS [None]
  - PORTAL VEIN THROMBOSIS [None]
  - GASTRIC FISTULA [None]
